FAERS Safety Report 5058467-4 (Version None)
Quarter: 2006Q3

REPORT INFORMATION
  Report Type: 
  Country: None (occurrence: None)
  Receive Date: 20060719
  Receipt Date: 20060703
  Transmission Date: 20061208
  Serious: Yes (Hospitalization)
  Sender: FDA-Public Use
  Company Number: DSA_28403_2006

PATIENT
  Age: 24 Month
  Sex: Female

DRUGS (1)
  1. TAVOR [Suspect]
     Dosage: 2 MG ONCE PO
     Route: 048
     Dates: start: 20060703, end: 20060703

REACTIONS (2)
  - ACCIDENTAL OVERDOSE [None]
  - FATIGUE [None]
